FAERS Safety Report 13838627 (Version 1)
Quarter: 2017Q3

REPORT INFORMATION
  Report Type: Spontaneous
  Country: US (occurrence: US)
  Receive Date: 20170804
  Receipt Date: 20170804
  Transmission Date: 20171127
  Serious: Yes (Other)
  Sender: FDA-Public Use
  Company Number: None

PATIENT
  Sex: Female

DRUGS (12)
  1. CIALIS [Concomitant]
     Active Substance: TADALAFIL
  2. OMEPRAZOLE. [Concomitant]
     Active Substance: OMEPRAZOLE
  3. DIPHENHYDRAMINE. [Concomitant]
     Active Substance: DIPHENHYDRAMINE
  4. ASA [Concomitant]
     Active Substance: ASPIRIN
  5. AMITRIPTYLINE [Concomitant]
     Active Substance: AMITRIPTYLINE
  6. PSEUDOEPHRINE [Concomitant]
  7. PANTROPRAZOLE SODIUM CADISTA [Concomitant]
     Active Substance: PANTOPRAZOLE SODIUM
  8. ESBRIET [Suspect]
     Active Substance: PIRFENIDONE
     Indication: IDIOPATHIC PULMONARY FIBROSIS
     Route: 048
     Dates: start: 20170616
  9. TEMAZEPAM. [Concomitant]
     Active Substance: TEMAZEPAM
  10. Q-PAP [Concomitant]
     Active Substance: ACETAMINOPHEN
  11. IPRATROPIUM [Concomitant]
     Active Substance: IPRATROPIUM
  12. ONDANSETRON [Concomitant]
     Active Substance: ONDANSETRON

REACTIONS (6)
  - Blood pressure decreased [None]
  - Vomiting [None]
  - Diarrhoea [None]
  - Malaise [None]
  - Dehydration [None]
  - Loss of consciousness [None]

NARRATIVE: CASE EVENT DATE: 2017
